FAERS Safety Report 24701409 (Version 2)
Quarter: 2024Q4

REPORT INFORMATION
  Report Type: Spontaneous
  Country: US (occurrence: US)
  Receive Date: 20241205
  Receipt Date: 20241210
  Transmission Date: 20250115
  Serious: Yes (Other)
  Sender: RECKITT BENCKISER
  Company Number: US-PROD-AS2-212756134-20-24-USA-RB-0013094

PATIENT
  Sex: Female

DRUGS (4)
  1. MUCINEX [Suspect]
     Active Substance: GUAIFENESIN
     Indication: Productive cough
     Dosage: 1 DF, QD (DAILY, AT NIGHT. TOTAL TOOK 2 DF)
     Route: 048
     Dates: start: 20241127, end: 20241129
  2. MUCINEX [Suspect]
     Active Substance: GUAIFENESIN
     Indication: Sinus disorder
  3. MUCINEX [Suspect]
     Active Substance: GUAIFENESIN
     Indication: Cough
  4. MUCINEX [Suspect]
     Active Substance: GUAIFENESIN
     Indication: Viral infection

REACTIONS (5)
  - Haematochezia [Recovered/Resolved]
  - Constipation [Recovered/Resolved]
  - Product use in unapproved indication [Recovered/Resolved]
  - Incorrect dose administered [Recovered/Resolved]
  - Diarrhoea [Recovered/Resolved]

NARRATIVE: CASE EVENT DATE: 20241127
